FAERS Safety Report 8613920 (Version 3)
Quarter: 2012Q4

REPORT INFORMATION
  Report Type: 
  Country: CA (occurrence: CA)
  Receive Date: 20120614
  Receipt Date: 20121012
  Transmission Date: 20130627
  Serious: Yes (Other)
  Sender: FDA-Public Use
  Company Number: PHHY2012CA049413

PATIENT
  Age: 64 None
  Sex: Female

DRUGS (6)
  1. GLEEVEC [Suspect]
     Indication: CHRONIC MYELOID LEUKAEMIA
     Dosage: 400 mg, daily
     Route: 048
     Dates: start: 200708
  2. TYLENOL [Concomitant]
  3. CITALOPRAM [Concomitant]
  4. DOXEPIN [Concomitant]
  5. TRIAZIDE [Concomitant]
  6. TIMOPTIC [Concomitant]

REACTIONS (12)
  - Hepatic steatosis [Not Recovered/Not Resolved]
  - Fibromyalgia [Unknown]
  - Ligament sprain [Unknown]
  - Pain [Unknown]
  - Pain in extremity [Not Recovered/Not Resolved]
  - Leukaemic infiltration hepatic [Unknown]
  - Neuropathy peripheral [Unknown]
  - Glaucoma [Unknown]
  - Oedema peripheral [Unknown]
  - Arthralgia [Unknown]
  - Weight decreased [Unknown]
  - Hypertension [Unknown]
